FAERS Safety Report 12380382 (Version 1)
Quarter: 2016Q2

REPORT INFORMATION
  Report Type: Spontaneous
  Country: US (occurrence: US)
  Receive Date: 20160518
  Receipt Date: 20160518
  Transmission Date: 20160815
  Serious: No
  Sender: FDA-Public Use
  Company Number: US-PFIZER INC-2016236091

PATIENT
  Age: 70 Year
  Sex: Female
  Weight: 83 kg

DRUGS (1)
  1. ADVIL [Suspect]
     Active Substance: IBUPROFEN
     Indication: BACK PAIN
     Dosage: 2 DF, WEEKLY
     Route: 048

REACTIONS (7)
  - Product physical issue [Recovered/Resolved]
  - Expired product administered [Recovered/Resolved]
  - Dysgeusia [Unknown]
  - Oral discomfort [Recovered/Resolved]
  - Poor quality drug administered [Recovered/Resolved]
  - Product taste abnormal [Unknown]
  - Accidental exposure to product [Unknown]

NARRATIVE: CASE EVENT DATE: 201601
